FAERS Safety Report 4943610-5 (Version None)
Quarter: 2006Q1

REPORT INFORMATION
  Report Type: 
  Country: None (occurrence: None)
  Receive Date: 20060310
  Receipt Date: 20060303
  Transmission Date: 20060701
  Serious: Yes (Hospitalization, Other)
  Sender: FDA-Public Use
  Company Number: 2006AL000616

PATIENT
  Age: 38 Year
  Sex: Male

DRUGS (2)
  1. CITALOPRAM HYDROBROMIDE [Suspect]
     Indication: DEPRESSION
  2. INTERFERON BETA-1A [Suspect]
     Dosage: 308 UG SC
     Route: 058

REACTIONS (9)
  - ANXIETY [None]
  - CHILLS [None]
  - ERYTHEMA [None]
  - MYALGIA [None]
  - NEUROSIS [None]
  - OVERDOSE [None]
  - PYREXIA [None]
  - SUICIDE ATTEMPT [None]
  - TREATMENT NONCOMPLIANCE [None]
